FAERS Safety Report 6265091-4 (Version None)
Quarter: 2009Q3

REPORT INFORMATION
  Report Type: 
  Country: None (occurrence: None)
  Receive Date: 20090709
  Receipt Date: 20090709
  Transmission Date: 20100115
  Serious: Yes (Other)
  Sender: FDA-Public Use
  Company Number: None

PATIENT
  Sex: Female
  Weight: 68.0396 kg

DRUGS (1)
  1. BONIVA [Suspect]
     Dosage: 1 A MONTH 1 PER MOUTH
     Route: 048

REACTIONS (5)
  - ORAL PAIN [None]
  - OROPHARYNGEAL PAIN [None]
  - PAIN IN JAW [None]
  - TOOTH DISORDER [None]
  - TOOTH INFECTION [None]
